FAERS Safety Report 4697938-7 (Version None)
Quarter: 2005Q2

REPORT INFORMATION
  Report Type: 
  Country: None (occurrence: None)
  Receive Date: 20050623
  Receipt Date: 20050615
  Transmission Date: 20051028
  Serious: Yes (Other)
  Sender: FDA-Public Use
  Company Number: GB-BOEHRINGER INGELHEIM PHARMACEUTICALS, INC.-2005-UK-01067UK

PATIENT
  Age: 77 Year
  Sex: Female

DRUGS (3)
  1. MICARDIS TABLETS (EU/1/98/090/001-012) [Suspect]
     Indication: HYPERTENSION
     Route: 048
     Dates: start: 20030317, end: 20050525
  2. SIMVASTATIN [Concomitant]
     Indication: HYPERLIPIDAEMIA
     Route: 048
     Dates: start: 20030313
  3. BUMETANIDE [Concomitant]
     Indication: HYPERTENSION
     Route: 048
     Dates: start: 20030118

REACTIONS (2)
  - CHEST DISCOMFORT [None]
  - WHEEZING [None]
